FAERS Safety Report 5763647-6 (Version None)
Quarter: 2008Q2

REPORT INFORMATION
  Report Type: 
  Country: None (occurrence: None)
  Receive Date: 20080610
  Receipt Date: 20080129
  Transmission Date: 20081010
  Serious: No
  Sender: FDA-Public Use
  Company Number: US-BAYER-200813044NA

PATIENT
  Age: 26 Year
  Sex: Female
  Weight: 93 kg

DRUGS (7)
  1. MIRENA [Suspect]
     Indication: CONTRACEPTION
     Route: 015
     Dates: start: 20071207
  2. NUVARING [Concomitant]
  3. VALIUM [Concomitant]
     Indication: SLEEP DISORDER
  4. LAMICTAL [Concomitant]
     Indication: BIPOLAR DISORDER
  5. SEROQUEL [Concomitant]
     Indication: BIPOLAR DISORDER
  6. VICODIN [Concomitant]
     Indication: BACK PAIN
  7. TRASYDIM [Concomitant]
     Indication: DRUG USE FOR UNKNOWN INDICATION

REACTIONS (5)
  - FEELING OF BODY TEMPERATURE CHANGE [None]
  - MIGRAINE [None]
  - PROCEDURAL PAIN [None]
  - VAGINAL HAEMORRHAGE [None]
  - VOMITING [None]
